FAERS Safety Report 8444119-7 (Version None)
Quarter: 2012Q2

REPORT INFORMATION
  Report Type: 
  Country: None (occurrence: None)
  Receive Date: 20120618
  Receipt Date: 20120606
  Transmission Date: 20120825
  Serious: Yes (Life-Threatening, Hospitalization, Other)
  Sender: FDA-Public Use
  Company Number: CA-BRISTOL-MYERS SQUIBB COMPANY-16673402

PATIENT
  Age: 77 Year
  Sex: Female

DRUGS (4)
  1. VITAMIN D [Concomitant]
  2. DASATINIB [Suspect]
     Indication: CHRONIC MYELOID LEUKAEMIA
     Dates: start: 20110922
  3. LEVOTHYROXINE SODIUM [Concomitant]
  4. PROBIOTICA [Concomitant]

REACTIONS (3)
  - CARDIAC ARREST [None]
  - PERICARDIAL EFFUSION [None]
  - PLEURAL EFFUSION [None]
